FAERS Safety Report 7084763-5 (Version None)
Quarter: 2010Q4

REPORT INFORMATION
  Report Type: 
  Country: None (occurrence: None)
  Receive Date: 20101104
  Receipt Date: 20101025
  Transmission Date: 20110411
  Serious: Yes (Other)
  Sender: FDA-Public Use
  Company Number: DE-B.I. PHARMACEUTICALS,INC./RIDGEFIELD-2010-DE-05831DE

PATIENT
  Age: 70 Year
  Sex: Female

DRUGS (3)
  1. PRAMIPEXOLE DIHYDROCHLORIDE [Suspect]
     Indication: RESTLESS LEGS SYNDROME
  2. NITRENDIPIN [Concomitant]
     Indication: HYPERTENSION
  3. SARTAN [Concomitant]
     Indication: HYPERTENSION

REACTIONS (3)
  - EPILEPSY [None]
  - FALL [None]
  - MIGRAINE WITH AURA [None]
